FAERS Safety Report 6427401-4 (Version None)
Quarter: 2009Q4

REPORT INFORMATION
  Report Type: 
  Country: None (occurrence: None)
  Receive Date: 20091104
  Receipt Date: 20091028
  Transmission Date: 20100525
  Serious: Yes (Other)
  Sender: FDA-Public Use
  Company Number: US-PFIZER INC-2009249529

PATIENT
  Sex: Female
  Weight: 49.8 kg

DRUGS (2)
  1. CELEBREX [Suspect]
     Indication: OSTEOARTHRITIS
     Dosage: 200 MG, 1X/DAY
     Route: 048
     Dates: start: 20090710, end: 20090725
  2. CELEBREX [Suspect]
     Dosage: X 8 YEARS
     Dates: end: 20090709

REACTIONS (4)
  - ECCHYMOSIS [None]
  - MENORRHAGIA [None]
  - SKIN FRAGILITY [None]
  - STEVENS-JOHNSON SYNDROME [None]
